FAERS Safety Report 10228754 (Version 1)
Quarter: 2014Q2

REPORT INFORMATION
  Report Type: Spontaneous
  Country: US (occurrence: None)
  Receive Date: 20140502
  Receipt Date: 20140502
  Transmission Date: 20141212
  Serious: Yes (Hospitalization, Other)
  Sender: FDA-Public Use
  Company Number: 2014S1000749

PATIENT
  Age: 84 Year
  Sex: Male

DRUGS (4)
  1. IPRATROPIUM BROMIDE AND ALBUTEROL SULFATE [Suspect]
     Indication: DYSPNOEA
     Route: 055
     Dates: start: 2013
  2. ASA [Concomitant]
  3. AMLODIPINE [Concomitant]
  4. LISINOPRIL [Concomitant]
     Indication: DYSPNOEA

REACTIONS (3)
  - Drug ineffective [None]
  - Dyspnoea [None]
  - Pneumonia [None]
